FAERS Safety Report 9714748 (Version 1)
Quarter: 2013Q4

REPORT INFORMATION
  Report Type: Spontaneous
  Country: GB (occurrence: GB)
  Receive Date: 20131126
  Receipt Date: 20131126
  Transmission Date: 20140711
  Serious: Yes (Death)
  Sender: FDA-Public Use
  Company Number: GB-BAXTER-2013BAX046374

PATIENT
  Age: 56 Year
  Sex: Male

DRUGS (1)
  1. SODIUM CHLORIDE 0.9% W/V AND GLUCOSE 5% W/V SOLUTION FOR INFUSION BP [Suspect]
     Indication: PRODUCT USED FOR UNKNOWN INDICATION
     Route: 042

REACTIONS (2)
  - Wrong drug administered [Fatal]
  - Hypoglycaemia [Fatal]
